FAERS Safety Report 5203797-6 (Version None)
Quarter: 2007Q1

REPORT INFORMATION
  Report Type: 
  Country: None (occurrence: None)
  Receive Date: 20070105
  Receipt Date: 20061221
  Transmission Date: 20070707
  Serious: Yes (Hospitalization)
  Sender: FDA-Public Use
  Company Number: DAV-AE-ALB-06-001

PATIENT
  Age: 68 Year
  Sex: Female

DRUGS (2)
  1. ALBUTEROL [Suspect]
     Indication: ASTHMA
     Dosage: INHALATION
     Route: 055
  2. LASIX [Suspect]
     Indication: OEDEMA PERIPHERAL
     Dosage: 40 MG

REACTIONS (7)
  - HYPERHIDROSIS [None]
  - HYPOKALAEMIA [None]
  - OEDEMA PERIPHERAL [None]
  - PALLOR [None]
  - RESPIRATORY DISTRESS [None]
  - VENTRICULAR EXTRASYSTOLES [None]
  - VENTRICULAR TACHYCARDIA [None]
